FAERS Safety Report 9029015 (Version 1)
Quarter: 2013Q1

REPORT INFORMATION
  Report Type: Spontaneous
  Country: BR (occurrence: BR)
  Receive Date: 20130122
  Receipt Date: 20130122
  Transmission Date: 20140127
  Serious: Yes (Other)
  Sender: FDA-Public Use
  Company Number: PHHY2013BR005401

PATIENT
  Sex: Male
  Weight: 48 kg

DRUGS (4)
  1. RITALIN [Suspect]
     Indication: ATTENTION DEFICIT/HYPERACTIVITY DISORDER
     Dosage: 1 DF, DAILY (IN THE MORNING)
     Route: 048
  2. RITALIN [Suspect]
     Dosage: 3 DF (1 TABLET IN THE MORNING AND 2 TABLETS IN THE AFTERNOON), DAILY
     Route: 048
  3. RITALIN [Suspect]
     Dosage: 1 UNK, DAILY
     Route: 048
     Dates: start: 201212
  4. SERTRALINE [Concomitant]
     Indication: DEPRESSION
     Dosage: 1 DF, DAILY
     Route: 048

REACTIONS (5)
  - Depression [Recovering/Resolving]
  - Speech disorder [Recovered/Resolved]
  - Swollen tongue [Recovered/Resolved]
  - Hypokinesia [Recovered/Resolved]
  - Movement disorder [Recovered/Resolved]
